FAERS Safety Report 24130858 (Version 1)
Quarter: 2024Q3

REPORT INFORMATION
  Report Type: Report from Study
  Country: CA (occurrence: CA)
  Receive Date: 20240724
  Receipt Date: 20240724
  Transmission Date: 20241017
  Serious: Yes (Hospitalization)
  Sender: RIGEL PHARMACEUTICALS
  Company Number: CA-RIGEL PHARMACEUTICALS, INC.-2022FOS000239

PATIENT
  Sex: Female

DRUGS (10)
  1. FOSTAMATINIB DISODIUM [Suspect]
     Active Substance: FOSTAMATINIB DISODIUM
     Indication: Product used for unknown indication
     Route: 048
     Dates: start: 202407
  2. FOSTAMATINIB DISODIUM [Suspect]
     Active Substance: FOSTAMATINIB DISODIUM
     Indication: Immune thrombocytopenia
     Dosage: 150 MG, BID
     Route: 048
     Dates: start: 20220412
  3. FOSTAMATINIB DISODIUM [Suspect]
     Active Substance: FOSTAMATINIB DISODIUM
     Dosage: 100 MG, BID
     Route: 048
     Dates: start: 20220218, end: 2022
  4. PREDNISONE ACETATE [Concomitant]
     Active Substance: PREDNISONE ACETATE
     Indication: Product used for unknown indication
     Dosage: UNK
  5. RITUXIMAB [Concomitant]
     Active Substance: RITUXIMAB
     Indication: Product used for unknown indication
     Dosage: UNK
  6. HUMAN IMMUNOGLOBULIN G [Concomitant]
     Active Substance: HUMAN IMMUNOGLOBULIN G
     Indication: Product used for unknown indication
     Dosage: UNK
  7. BORTEZOMIB [Concomitant]
     Active Substance: BORTEZOMIB
     Indication: Product used for unknown indication
     Dosage: UNK
  8. ROMIPLOSTIM [Concomitant]
     Active Substance: ROMIPLOSTIM
     Dosage: UNK
  9. ELTROMBOPAG [Concomitant]
     Active Substance: ELTROMBOPAG
     Dosage: UNK
  10. MYCOPHENOLATE MOFETIL [Concomitant]
     Active Substance: MYCOPHENOLATE MOFETIL
     Dosage: UNK

REACTIONS (3)
  - Hospitalisation [Unknown]
  - Platelet count abnormal [Unknown]
  - Haemoglobin abnormal [Unknown]

NARRATIVE: CASE EVENT DATE: 20220101
